FAERS Safety Report 11286325 (Version 4)
Quarter: 2015Q4

REPORT INFORMATION
  Report Type: Spontaneous
  Country: US (occurrence: None)
  Receive Date: 20150717
  Receipt Date: 20151201
  Transmission Date: 20160304
  Serious: Yes (Hospitalization, Other)
  Sender: FDA-Public Use
  Company Number: ADR-2015-01327

PATIENT
  Age: 59 Year
  Sex: Female

DRUGS (1)
  1. BACLOFEN INTRATHECAL 2000 MCG/ML [Suspect]
     Active Substance: BACLOFEN
     Indication: MUSCLE SPASTICITY
     Dosage: 925 MCG/DAY

REACTIONS (10)
  - Medical device site discharge [None]
  - Weight decreased [None]
  - Medical device site irritation [None]
  - Pyrexia [None]
  - Bloody discharge [None]
  - Iron deficiency anaemia [None]
  - Wound dehiscence [None]
  - Medical device site erythema [None]
  - Implant site extravasation [None]
  - Device dislocation [None]
